FAERS Safety Report 6955232-5 (Version None)
Quarter: 2010Q3

REPORT INFORMATION
  Report Type: 
  Country: None (occurrence: None)
  Receive Date: 20100830
  Receipt Date: 20100817
  Transmission Date: 20110219
  Serious: Yes (Other)
  Sender: FDA-Public Use
  Company Number: US-ELI_LILLY_AND_COMPANY-US200810001874

PATIENT
  Sex: Male

DRUGS (6)
  1. SYMBYAX [Suspect]
     Indication: GASTROINTESTINAL PAIN
     Dosage: 1 D/F, UNK
     Dates: start: 20010101
  2. ZYPREXA [Suspect]
     Indication: GASTROINTESTINAL PAIN
     Dosage: 10 MG, DAILY (1/D)
  3. AMBIEN [Concomitant]
  4. DIOVAN [Concomitant]
  5. DARVOCET [Concomitant]
  6. XANAX [Concomitant]

REACTIONS (17)
  - ABNORMAL BEHAVIOUR [None]
  - CENTRAL OBESITY [None]
  - COGNITIVE DISORDER [None]
  - DISTURBANCE IN ATTENTION [None]
  - FATIGUE [None]
  - HAIR GROWTH ABNORMAL [None]
  - INSOMNIA [None]
  - IRRITABILITY [None]
  - MEMORY IMPAIRMENT [None]
  - MUSCULOSKELETAL PAIN [None]
  - NECK DEFORMITY [None]
  - NECK PAIN [None]
  - OFF LABEL USE [None]
  - PERSONALITY CHANGE [None]
  - SOCIAL AVOIDANT BEHAVIOUR [None]
  - SPINAL COLUMN INJURY [None]
  - WEIGHT INCREASED [None]
